FAERS Safety Report 4567218-9 (Version None)
Quarter: 2005Q1

REPORT INFORMATION
  Report Type: 
  Country: None (occurrence: None)
  Receive Date: 20050201
  Receipt Date: 20050131
  Transmission Date: 20050727
  Serious: Yes (Hospitalization)
  Sender: FDA-Public Use
  Company Number: 2005001870

PATIENT
  Age: 58 Year
  Sex: Female
  Weight: 60 kg

DRUGS (6)
  1. LAMICTAL [Suspect]
     Route: 048
  2. ELMENDOS [Suspect]
     Route: 048
  3. QUILONUM [Suspect]
     Route: 048
  4. STILNOX [Suspect]
     Route: 048
  5. TREVILOR [Suspect]
     Route: 048
  6. TOPAMAX [Suspect]
     Route: 048

REACTIONS (5)
  - HYPOTHERMIA [None]
  - INTENTIONAL MISUSE [None]
  - SOMNOLENCE [None]
  - SUICIDE ATTEMPT [None]
  - TACHYCARDIA [None]
